FAERS Safety Report 9765141 (Version 1)
Quarter: 2013Q4

REPORT INFORMATION
  Report Type: Other
  Country: GB (occurrence: GB)
  Receive Date: 20131217
  Receipt Date: 20131217
  Transmission Date: 20140711
  Serious: Yes (Hospitalization)
  Sender: FDA-Public Use
  Company Number: GB-TARO PHARMACEUTICALS U.S.A., INC-2013SUN05201

PATIENT
  Age: 86 Year
  Sex: Female

DRUGS (14)
  1. WARFARIN [Suspect]
     Indication: DEEP VEIN THROMBOSIS
     Dosage: UNK
     Route: 048
     Dates: start: 20131115
  2. WARFARIN [Suspect]
     Indication: PULMONARY EMBOLISM
  3. RIVASTIGMINE [Concomitant]
     Indication: DEMENTIA WITH LEWY BODIES
  4. BUMETANIDE [Concomitant]
  5. BUPRENORPHINE [Concomitant]
  6. CITALOPRAM [Concomitant]
  7. DIHYDROCODEINE [Concomitant]
  8. ESOMEPRAZOLE [Concomitant]
  9. FERROUS SULPHATE [Concomitant]
  10. GABAPENTIN [Concomitant]
  11. LEVOTHYROXINE [Concomitant]
  12. PARACETAMOL [Concomitant]
  13. SENNA [Concomitant]
  14. SIMVASTATIN [Concomitant]

REACTIONS (1)
  - Hallucination [Recovering/Resolving]
